FAERS Safety Report 6278186-6 (Version None)
Quarter: 2009Q3

REPORT INFORMATION
  Report Type: 
  Country: None (occurrence: None)
  Receive Date: 20090720
  Receipt Date: 20090709
  Transmission Date: 20100115
  Serious: Yes (Hospitalization, Disabling)
  Sender: FDA-Public Use
  Company Number: ADR5892009 (ARROW LOB NO. 2008AG192

PATIENT
  Age: 64 Year
  Sex: Male

DRUGS (6)
  1. SIMVASTATIN [Suspect]
     Indication: HYPERCHOLESTEROLAEMIA
     Dosage: ORAL
     Route: 048
     Dates: start: 20080522, end: 20080702
  2. IRBESARTAN [Concomitant]
  3. CENTYL MED KALIUMKLORID (BENDROFLUMETHIAZIDE, POTASSIUM) [Concomitant]
  4. LANSOPRAZOL (LANSOPRAZOLE) [Concomitant]
  5. REMERON SMELT (MIRTAZAPINE) [Concomitant]
  6. ATENOLOL [Concomitant]

REACTIONS (4)
  - CONFUSIONAL STATE [None]
  - DISSOCIATION [None]
  - MEMORY IMPAIRMENT [None]
  - TREMOR [None]
